FAERS Safety Report 10058869 (Version 5)
Quarter: 2014Q2

REPORT INFORMATION
  Report Type: Spontaneous
  Country: US (occurrence: US)
  Receive Date: 20140404
  Receipt Date: 20140522
  Transmission Date: 20141212
  Serious: Yes (Death, Hospitalization)
  Sender: FDA-Public Use
  Company Number: US-BAXTER-2014BAX016693

PATIENT
  Sex: Male

DRUGS (4)
  1. DIANEAL LOW CALCIUM [Suspect]
     Indication: PERITONEAL DIALYSIS
     Route: 033
     Dates: start: 20131226
  2. DIANEAL LOW CALCIUM [Suspect]
     Route: 033
     Dates: start: 20131226, end: 20140420
  3. DIANEAL LOW CALCIUM [Suspect]
     Indication: PERITONEAL DIALYSIS
     Route: 033
     Dates: start: 20131226
  4. DIANEAL LOW CALCIUM [Suspect]
     Route: 033
     Dates: start: 20131226, end: 20140420

REACTIONS (3)
  - Respiratory failure [Fatal]
  - Localised infection [Recovering/Resolving]
  - Failure to thrive [Unknown]
